FAERS Safety Report 7237424-3 (Version None)
Quarter: 2011Q1

REPORT INFORMATION
  Report Type: 
  Country: None (occurrence: None)
  Receive Date: 20110121
  Receipt Date: 20110112
  Transmission Date: 20110831
  Serious: Yes (Death, Hospitalization)
  Sender: FDA-Public Use
  Company Number: DE-NOVOPROD-317635

PATIENT
  Age: 83 Year
  Sex: Female

DRUGS (2)
  1. FEIBA [Suspect]
     Dosage: UNK
  2. NOVOSEVEN [Suspect]
     Indication: ACQUIRED HAEMOPHILIA WITH ANTI FVIII, XI, OR XIII
     Dosage: 90 UG/KG BODY WEIGHT
     Dates: start: 20090405, end: 20090411

REACTIONS (1)
  - ACUTE MYOCARDIAL INFARCTION [None]
